FAERS Safety Report 4984727-9 (Version None)
Quarter: 2006Q2

REPORT INFORMATION
  Report Type: 
  Country: None (occurrence: None)
  Receive Date: 20060427
  Receipt Date: 20060414
  Transmission Date: 20061013
  Serious: Yes (Other)
  Sender: FDA-Public Use
  Company Number: KR-MERCK-0604USA03817

PATIENT
  Age: 65 Year
  Sex: Male

DRUGS (1)
  1. PRIMAXIN [Suspect]
     Indication: BACTERAEMIA
     Route: 041

REACTIONS (3)
  - DRUG INEFFECTIVE [None]
  - DRUG RESISTANCE [None]
  - EXTRADURAL ABSCESS [None]
